FAERS Safety Report 11930174 (Version 3)
Quarter: 2016Q2

REPORT INFORMATION
  Report Type: Spontaneous
  Country: JP (occurrence: JP)
  Receive Date: 20160120
  Receipt Date: 20160527
  Transmission Date: 20160815
  Serious: Yes (Disabling, Other)
  Sender: FDA-Public Use
  Company Number: JP-SA-2016SA006498

PATIENT
  Age: 14 Year
  Sex: Male

DRUGS (4)
  1. CERCINE [Concomitant]
     Active Substance: DIAZEPAM
     Indication: CONVULSION PROPHYLAXIS
     Route: 048
     Dates: start: 20150104
  2. CYCLOPHOSPHAMIDE. [Suspect]
     Active Substance: CYCLOPHOSPHAMIDE
     Indication: DIFFUSE LARGE B-CELL LYMPHOMA
     Route: 065
     Dates: start: 20141027, end: 20141207
  3. EVOLTRA [Suspect]
     Active Substance: CLOFARABINE
     Indication: ACUTE LYMPHOCYTIC LEUKAEMIA RECURRENT
     Route: 065
     Dates: start: 20141027, end: 20141207
  4. VP-16 [Suspect]
     Active Substance: ETOPOSIDE
     Indication: DIFFUSE LARGE B-CELL LYMPHOMA
     Route: 065
     Dates: start: 20141027, end: 20141207

REACTIONS (3)
  - Blindness unilateral [Not Recovered/Not Resolved]
  - Endothelial dysfunction [Not Recovered/Not Resolved]
  - Retinal artery occlusion [Not Recovered/Not Resolved]

NARRATIVE: CASE EVENT DATE: 20150105
